FAERS Safety Report 25269188 (Version 1)
Quarter: 2025Q2

REPORT INFORMATION
  Report Type: Spontaneous
  Country: US (occurrence: None)
  Receive Date: 20250505
  Receipt Date: 20250505
  Transmission Date: 20250717
  Serious: Yes (Life-Threatening, Hospitalization, Other)
  Sender: FDA-CTU
  Company Number: None

PATIENT
  Age: 74 Year
  Sex: Female
  Weight: 66.6 kg

DRUGS (31)
  1. INDOCIN [Suspect]
     Active Substance: INDOMETHACIN
     Dosage: OTHER QUANTITY : 2 TABLET(S);?FREQUENCY : TWICE A DAY;?
     Route: 048
     Dates: start: 20250412, end: 20250414
  2. ATORVASTATIN [Concomitant]
     Active Substance: ATORVASTATIN
  3. AZELASTINE HYDROCHLORIDE [Concomitant]
     Active Substance: AZELASTINE HYDROCHLORIDE
  4. BACLOFEN [Concomitant]
     Active Substance: BACLOFEN
  5. BREZTRI [Concomitant]
     Active Substance: BUDESONIDE\FORMOTEROL\GLYCOPYRROLATE
  6. carvediolo [Concomitant]
  7. CLOPIDOGREL [Concomitant]
     Active Substance: CLOPIDOGREL BISULFATE
  8. DULOXETINE [Concomitant]
     Active Substance: DULOXETINE
  9. FLUTICASONE [Concomitant]
     Active Substance: FLUTICASONE
  10. FUROSEMIDE [Concomitant]
     Active Substance: FUROSEMIDE
  11. hydrocodonacetaminophen [Concomitant]
  12. LACTULOSE [Concomitant]
     Active Substance: LACTULOSE
  13. mododrine [Concomitant]
  14. MONTELUKAST [Concomitant]
     Active Substance: MONTELUKAST
  15. MORPHINE [Concomitant]
     Active Substance: MORPHINE
  16. POTASSIUM [Concomitant]
     Active Substance: POTASSIUM
  17. PREGABALIN [Concomitant]
     Active Substance: PREGABALIN
  18. RETACRIT [Concomitant]
     Active Substance: EPOETIN ALFA-EPBX
  19. Medtronic intrathecal pump for baclofen [Concomitant]
  20. MORPHINE [Concomitant]
     Active Substance: MORPHINE
  21. ASPIRIN [Concomitant]
     Active Substance: ASPIRIN
  22. NM-6603 [Concomitant]
     Active Substance: NM-6603
  23. VITAMIN B COMPLEX [Concomitant]
     Active Substance: CYANOCOBALAMIN\DEXPANTHENOL\NIACINAMIDE\PYRIDOXINE HYDROCHLORIDE\RIBOFLAVIN 5^-PHOSPHATE SODIUM\THIA
  24. CRANBERRY [Concomitant]
     Active Substance: CRANBERRY
  25. CHOLECALCIFEROL [Concomitant]
     Active Substance: CHOLECALCIFEROL
  26. colase [Concomitant]
  27. FOLIC ACID [Concomitant]
     Active Substance: FOLIC ACID
  28. IRON [Concomitant]
     Active Substance: IRON
  29. MIRALAX [Concomitant]
     Active Substance: POLYETHYLENE GLYCOL 3350
  30. MULTI-VITAMIN [Concomitant]
     Active Substance: .ALPHA.-TOCOPHEROL ACETATE, DL-\ASCORBIC ACID\CYANOCOBALAMIN\FLUORIDE ION\FOLIC ACID\NIACIN\PYRIDOXI
  31. voltaran gel [Concomitant]

REACTIONS (7)
  - Pruritus [None]
  - Burning sensation [None]
  - Agitation [None]
  - Confusional state [None]
  - Asthenia [None]
  - Hypotension [None]
  - Tachycardia [None]

NARRATIVE: CASE EVENT DATE: 20250415
